FAERS Safety Report 8249374-4 (Version None)
Quarter: 2012Q1

REPORT INFORMATION
  Report Type: 
  Country: None (occurrence: None)
  Receive Date: 20120327
  Receipt Date: 20120315
  Transmission Date: 20120608
  Serious: Yes (Death)
  Sender: FDA-Public Use
  Company Number: 2012SP014071

PATIENT
  Sex: Male
  Weight: 70 kg

DRUGS (8)
  1. ZOFRAN [Concomitant]
  2. FAMOTIDINE [Concomitant]
  3. SEROTONE [Concomitant]
  4. TEMODAL [Suspect]
     Indication: GLIOBLASTOMA MULTIFORME
     Dosage: PO
     Route: 048
     Dates: start: 20100618, end: 20100620
  5. SULFAMETHOXAZOLE AND TRIMETHOPRIM [Concomitant]
  6. TEMODAL [Suspect]
     Dosage: 75 MG/M2;QD;IV
     Route: 042
     Dates: start: 20100621, end: 20100725
  7. RINDERON /00008502/ [Concomitant]
  8. DEPAKENE [Concomitant]

REACTIONS (4)
  - NEOPLASM PROGRESSION [None]
  - LYMPHOCYTE COUNT DECREASED [None]
  - C-REACTIVE PROTEIN INCREASED [None]
  - GLIOBLASTOMA MULTIFORME [None]
